FAERS Safety Report 19307169 (Version 1)
Quarter: 2021Q2

REPORT INFORMATION
  Report Type: Spontaneous
  Country: TR (occurrence: TR)
  Receive Date: 20210526
  Receipt Date: 20210526
  Transmission Date: 20210717
  Serious: Yes (Hospitalization, Other)
  Sender: FDA-Public Use
  Company Number: TR-ALS-000271

PATIENT
  Age: 37 Year
  Sex: Female

DRUGS (1)
  1. METFORMIN [Suspect]
     Active Substance: METFORMIN HYDROCHLORIDE
     Indication: SUICIDAL IDEATION
     Dosage: 60 GRAMS (1200 MG/KG)
     Route: 065

REACTIONS (7)
  - Overdose [Unknown]
  - Toxicity to various agents [Unknown]
  - Hypotension [Recovered/Resolved]
  - Lactic acidosis [Unknown]
  - Suicide attempt [Recovered/Resolved]
  - Loss of consciousness [Recovered/Resolved]
  - Drug ineffective for unapproved indication [Unknown]
